FAERS Safety Report 10715659 (Version 1)
Quarter: 2015Q1

REPORT INFORMATION
  Report Type: Spontaneous
  Country: FR (occurrence: FR)
  Receive Date: 20150116
  Receipt Date: 20150116
  Transmission Date: 20150721
  Serious: Yes (Other)
  Sender: FDA-Public Use
  Company Number: PHHY2015FR002694

PATIENT
  Age: 85 Year
  Sex: Male

DRUGS (2)
  1. SOMATULINE//LANREOTIDE [Concomitant]
     Active Substance: LANREOTIDE ACETATE
     Indication: ENDOCRINE NEOPLASM
     Dosage: 120 MG, (1 DF) EVERY 21 DAYS
     Route: 065
  2. OCTREOTIDE [Suspect]
     Active Substance: OCTREOTIDE
     Indication: ENDOCRINE NEOPLASM
     Dosage: 200 UG, TID
     Route: 065

REACTIONS (3)
  - Vomiting [Unknown]
  - Subileus [Recovered/Resolved]
  - Nausea [Unknown]
